FAERS Safety Report 16030372 (Version 1)
Quarter: 2019Q1

REPORT INFORMATION
  Report Type: Spontaneous
  Country: GR (occurrence: GR)
  Receive Date: 20190304
  Receipt Date: 20190304
  Transmission Date: 20190418
  Serious: Yes (Life-Threatening)
  Sender: FDA-Public Use
  Company Number: GR-BRISTOL-MYERS SQUIBB COMPANY-BMS-2019-019025

PATIENT
  Age: 45 Year
  Sex: Male
  Weight: 85 kg

DRUGS (3)
  1. ZOCOR [Suspect]
     Active Substance: SIMVASTATIN
     Indication: DYSLIPIDAEMIA
     Route: 048
     Dates: start: 2004, end: 2010
  2. PRAVACHOL [Suspect]
     Active Substance: PRAVASTATIN SODIUM
     Indication: DYSLIPIDAEMIA
     Route: 048
     Dates: start: 2010, end: 2016
  3. LESCOL [Suspect]
     Active Substance: FLUVASTATIN SODIUM
     Indication: DYSLIPIDAEMIA
     Route: 048
     Dates: start: 2016, end: 2017

REACTIONS (3)
  - Myopathy [Recovered/Resolved]
  - Blood creatine phosphokinase increased [Recovered/Resolved]
  - Myalgia [Recovered/Resolved]

NARRATIVE: CASE EVENT DATE: 2006
